FAERS Safety Report 24158388 (Version 2)
Quarter: 2024Q3

REPORT INFORMATION
  Report Type: Spontaneous
  Country: FR (occurrence: FR)
  Receive Date: 20240731
  Receipt Date: 20240806
  Transmission Date: 20241017
  Serious: Yes (Death, Other)
  Sender: MERCK
  Company Number: None

PATIENT
  Age: 76 Year
  Sex: Male
  Weight: 75 kg

DRUGS (7)
  1. METFORMIN\SITAGLIPTIN [Suspect]
     Active Substance: METFORMIN\SITAGLIPTIN
     Indication: Type 2 diabetes mellitus
     Dosage: 1 TABLET, QD
     Route: 048
     Dates: start: 202209, end: 20240108
  2. POTASSIUM CHLORIDE [Suspect]
     Active Substance: POTASSIUM CHLORIDE
     Indication: Hypokalaemia
     Dosage: 3 DOSAGE FOR, QD
     Route: 048
     Dates: start: 20221004, end: 20240108
  3. SINTROM [Suspect]
     Active Substance: ACENOCOUMAROL
     Indication: Atrial fibrillation
     Dosage: 1 DOSAGE FORM, QD. FORMULATION: QUADRISCORED TABLET
     Route: 048
     Dates: start: 202108, end: 20240108
  4. METFORMIN HYDROCHLORIDE [Suspect]
     Active Substance: METFORMIN HYDROCHLORIDE
     Indication: Type 2 diabetes mellitus
     Dosage: 1000 MILLIGRAM, QD
     Route: 048
     Dates: start: 2008, end: 20240108
  5. CRESTOR [Concomitant]
     Active Substance: ROSUVASTATIN CALCIUM
     Indication: Cardiovascular event prophylaxis
     Dosage: 10 MILLIGRAM, QD
     Route: 048
     Dates: start: 202108, end: 20240108
  6. TELMISARTAN [Concomitant]
     Active Substance: TELMISARTAN
     Indication: Hypertension
     Dosage: 40 MILLIGRAM, QD
     Route: 048
     Dates: start: 202108, end: 20240108
  7. BUMETANIDE [Concomitant]
     Active Substance: BUMETANIDE
     Indication: Hypertension
     Dosage: 4 MILLIGRAM, QD
     Route: 048
     Dates: end: 20240108

REACTIONS (4)
  - Accidental overdose [Fatal]
  - Melaena [Fatal]
  - Lactic acidosis [Fatal]
  - Hyperkalaemia [Recovered/Resolved]

NARRATIVE: CASE EVENT DATE: 20240106
